FAERS Safety Report 21177367 (Version 1)
Quarter: 2022Q3

REPORT INFORMATION
  Report Type: Spontaneous
  Country: FR (occurrence: FR)
  Receive Date: 20220805
  Receipt Date: 20220805
  Transmission Date: 20221026
  Serious: Yes (Hospitalization)
  Sender: FDA-Public Use
  Company Number: None

PATIENT
  Age: 35 Year
  Sex: Female
  Weight: 88 kg

DRUGS (4)
  1. GONAL-F [Suspect]
     Active Substance: FOLLITROPIN
     Indication: Anovulatory cycle
     Dosage: ACCORDING TO CYCLE, 900 UI/1.5 ML (66 MICROGRAMS/1.5 ML) SOLUTION FOR INJECTION IN PRE-FILLED PEN
     Route: 058
     Dates: start: 202203, end: 20220606
  2. CHORIOGONADOTROPIN ALFA [Suspect]
     Active Substance: CHORIOGONADOTROPIN ALFA
     Indication: Anovulatory cycle
     Dosage: ACCORDING TO CYCLE, POWDER AND SOLVENT FOR SOLUTION FOR INJECTION
     Route: 058
     Dates: start: 202203, end: 20220606
  3. CLOMID [Suspect]
     Active Substance: CLOMIPHENE CITRATE
     Indication: Anovulatory cycle
     Dosage: 2/D DEPENDING ON THE CYCLE
     Route: 048
     Dates: start: 202203, end: 20220606
  4. ESTRADIOL [Suspect]
     Active Substance: ESTRADIOL
     Indication: Anovulatory cycle
     Dosage: 1 TABLET/D DEPENDING ON THE CYCLE, COATED TABLET
     Route: 048
     Dates: start: 202203, end: 20220606

REACTIONS (1)
  - Cerebral venous thrombosis [Recovering/Resolving]

NARRATIVE: CASE EVENT DATE: 20220604
